FAERS Safety Report 22157971 (Version 2)
Quarter: 2023Q2

REPORT INFORMATION
  Report Type: Spontaneous
  Country: IT (occurrence: IT)
  Receive Date: 20230330
  Receipt Date: 20230412
  Transmission Date: 20230721
  Serious: Yes (Other)
  Sender: FDA-Public Use
  Company Number: IT-TEVA-2023-IT-2870761

PATIENT
  Age: 22 Year
  Sex: Female

DRUGS (2)
  1. PREDNISONE [Suspect]
     Active Substance: PREDNISONE
     Indication: Myasthenia gravis
     Dosage: 50 MILLIGRAM DAILY; ONCE A DAY , THE DOSES GRADUALLY TAPER AND THEN SUSPENDED AFTER 5 YEARS
     Route: 065
  2. PYRIDOSTIGMINE [Concomitant]
     Active Substance: PYRIDOSTIGMINE
     Indication: Myasthenia gravis
     Dosage: 240 MILLIGRAM DAILY; 60 MG FOUR TIMES A DAY
     Route: 065

REACTIONS (2)
  - Borderline leprosy [Unknown]
  - Peripheral sensory neuropathy [Unknown]
